FAERS Safety Report 6184683-4 (Version None)
Quarter: 2009Q2

REPORT INFORMATION
  Report Type: 
  Country: None (occurrence: None)
  Receive Date: 20090508
  Receipt Date: 20090427
  Transmission Date: 20091009
  Serious: Yes (Death)
  Sender: FDA-Public Use
  Company Number: BO-PFIZER INC-2009199629

PATIENT
  Age: 69 Year

DRUGS (1)
  1. NEURONTIN [Suspect]
     Indication: DIABETIC NEUROPATHY
     Dosage: UNK
     Dates: start: 20040101, end: 20090313

REACTIONS (2)
  - PLEURAL EFFUSION [None]
  - RESPIRATORY FAILURE [None]
